FAERS Safety Report 6816673-X (Version None)
Quarter: 2010Q2

REPORT INFORMATION
  Report Type: 
  Country: None (occurrence: None)
  Receive Date: 20100630
  Receipt Date: 20100615
  Transmission Date: 20101027
  Serious: Yes (Other)
  Sender: FDA-Public Use
  Company Number: 1000014719

PATIENT
  Age: 34 Year
  Sex: Female
  Weight: 78 kg

DRUGS (5)
  1. ESCITALOPRAM [Suspect]
     Indication: DEPRESSION
     Dosage: 10 MG (10 MG, 1 IN 1 D), ORAL
     Route: 048
     Dates: start: 20100503, end: 20100513
  2. NORDETTE-21 [Concomitant]
  3. LEVOTHYROXINE SODIUM [Concomitant]
  4. SOLUPRED [Concomitant]
  5. PANOS [Concomitant]

REACTIONS (2)
  - DYSKINESIA [None]
  - MUSCLE CONTRACTURE [None]
